FAERS Safety Report 5157244-3 (Version None)
Quarter: 2006Q4

REPORT INFORMATION
  Report Type: 
  Country: None (occurrence: None)
  Receive Date: 20061115
  Receipt Date: 20061108
  Transmission Date: 20070319
  Serious: Yes (Hospitalization)
  Sender: FDA-Public Use
  Company Number: GXBR2006US02033

PATIENT
  Age: 78 Year
  Sex: Female
  Weight: 77.1 kg

DRUGS (9)
  1. METOPROLOL TARTRATE [Suspect]
     Indication: HYPERTENSION
     Dosage: SEE IMAGE
     Dates: start: 19980101, end: 19980101
  2. METOPROLOL TARTRATE [Suspect]
     Indication: HYPERTENSION
     Dosage: SEE IMAGE
     Dates: start: 20060101, end: 20060101
  3. METFORMIN HCL [Concomitant]
  4. ALLOPURINOL [Concomitant]
  5. MAXZIDE [Concomitant]
  6. FOLIC ACID [Concomitant]
  7. GLIPIZIDE [Concomitant]
  8. LESCOL [Concomitant]
  9. NEXIUM [Concomitant]

REACTIONS (2)
  - HEART RATE INCREASED [None]
  - PHARMACEUTICAL PRODUCT COMPLAINT [None]
